FAERS Safety Report 17497139 (Version 1)
Quarter: 2020Q1

REPORT INFORMATION
  Report Type: Spontaneous
  Country: AU (occurrence: AU)
  Receive Date: 20200304
  Receipt Date: 20200304
  Transmission Date: 20200409
  Serious: Yes (Other)
  Sender: FDA-Public Use
  Company Number: AU-PFIZER INC-2020091750

PATIENT
  Age: 26 Year
  Sex: Male

DRUGS (20)
  1. DOXORUBICIN HCL [Suspect]
     Active Substance: DOXORUBICIN HYDROCHLORIDE
     Dosage: UNK (C2D1)
  2. METHOTREXATE. [Suspect]
     Active Substance: METHOTREXATE
     Indication: BURKITT^S LYMPHOMA
     Dosage: UNK (C1D1)
     Dates: start: 20191015
  3. CYTARABINE. [Suspect]
     Active Substance: CYTARABINE
     Dosage: UNK (CYCLE 2 R-IVAC)
     Dates: start: 20200112
  4. DOXORUBICIN HCL [Suspect]
     Active Substance: DOXORUBICIN HYDROCHLORIDE
     Indication: BURKITT^S LYMPHOMA
     Dosage: UNK (C1D1)
     Dates: start: 20191015
  5. ETOPOSIDE. [Suspect]
     Active Substance: ETOPOSIDE
     Dosage: UNK (CYCLE 2 R-IVAC)
     Dates: start: 20200112
  6. METHOTREXATE. [Suspect]
     Active Substance: METHOTREXATE
     Dosage: UNK
     Route: 037
     Dates: start: 20200216
  7. RITUXIMAB. [Suspect]
     Active Substance: RITUXIMAB
     Indication: BURKITT^S LYMPHOMA
     Dosage: UNK (C1D1 R-IVAC)
     Dates: start: 20191114
  8. RITUXIMAB. [Suspect]
     Active Substance: RITUXIMAB
     Dosage: UNK (CYCLE 2 R-IVAC )
     Dates: start: 20200112
  9. ETOPOSIDE. [Suspect]
     Active Substance: ETOPOSIDE
     Indication: BURKITT^S LYMPHOMA
     Dosage: UNK (C1D1)
     Dates: start: 20191114
  10. RITUXIMAB. [Suspect]
     Active Substance: RITUXIMAB
     Dosage: UNK (C2D1 R-CODOX-M)
  11. METHOTREXATE. [Suspect]
     Active Substance: METHOTREXATE
     Dosage: UNK (C2D1)
  12. IFOSFAMIDE. [Suspect]
     Active Substance: IFOSFAMIDE
     Dosage: UNK (CYCLE 2 R-IVAC)
     Dates: start: 20200112
  13. CYTARABINE. [Suspect]
     Active Substance: CYTARABINE
     Indication: BURKITT^S LYMPHOMA
     Dosage: UNK (C1D1)
     Dates: start: 20191114
  14. IFOSFAMIDE. [Suspect]
     Active Substance: IFOSFAMIDE
     Indication: BURKITT^S LYMPHOMA
     Dosage: UNK (C1D1)
     Dates: start: 20191114
  15. DEXAMETHASONE. [Concomitant]
     Active Substance: DEXAMETHASONE
     Dosage: 40 MG, DAILY (HIGH DOSE)
  16. CYCLOPHOSPHAMIDE. [Suspect]
     Active Substance: CYCLOPHOSPHAMIDE
     Dosage: UNK (C2D1)
  17. VINCRISTINE [Suspect]
     Active Substance: VINCRISTINE
     Indication: BURKITT^S LYMPHOMA
     Dosage: UNK (C1D1)
     Dates: start: 20191015
  18. CYCLOPHOSPHAMIDE. [Suspect]
     Active Substance: CYCLOPHOSPHAMIDE
     Indication: BURKITT^S LYMPHOMA
     Dosage: UNK (C1D1)
     Dates: start: 20191015
  19. VINCRISTINE [Suspect]
     Active Substance: VINCRISTINE
     Dosage: UNK (C2D1)
  20. RITUXIMAB. [Suspect]
     Active Substance: RITUXIMAB
     Dosage: UNK (C1D1 R-CODOX-M)
     Dates: start: 20191015

REACTIONS (3)
  - Staphylococcal bacteraemia [Unknown]
  - Febrile neutropenia [Unknown]
  - Neoplasm progression [Unknown]
